FAERS Safety Report 17911289 (Version 1)
Quarter: 2020Q2

REPORT INFORMATION
  Report Type: Spontaneous
  Country: ES (occurrence: ES)
  Receive Date: 20200618
  Receipt Date: 20200618
  Transmission Date: 20200714
  Serious: Yes (Hospitalization)
  Sender: FDA-Public Use
  Company Number: ES-TEVA-2020-ES-1454343

PATIENT
  Age: 48 Year
  Sex: Male

DRUGS (1)
  1. DOCETAXEL (7394A) [Suspect]
     Active Substance: DOCETAXEL
     Indication: PROSTATE CANCER STAGE IV
     Route: 042
     Dates: start: 20190805, end: 20190903

REACTIONS (2)
  - Condition aggravated [Recovered/Resolved]
  - Psoriasis [Recovered/Resolved]

NARRATIVE: CASE EVENT DATE: 20190805
